FAERS Safety Report 5061374-4 (Version None)
Quarter: 2006Q3

REPORT INFORMATION
  Report Type: 
  Country: None (occurrence: None)
  Receive Date: 20060719
  Receipt Date: 20060719
  Transmission Date: 20061208
  Serious: Yes (Hospitalization)
  Sender: FDA-Public Use
  Company Number: None

PATIENT
  Age: 74 Year
  Sex: Male

DRUGS (6)
  1. WARFARIN SODIUM [Suspect]
     Indication: HEART VALVE REPLACEMENT
     Dosage: 3MG QD EXCEPT SUNDAY + WEDNESDAY WHERE 6MG QD
     Dates: start: 19950401
  2. POTASSIUM CHLORIDE [Concomitant]
  3. TRAMADOL HCL [Concomitant]
  4. ALLOPURINOL [Concomitant]
  5. FOSINOPRIL SODIUM [Concomitant]
  6. LORATADINE [Concomitant]

REACTIONS (2)
  - DENTAL OPERATION [None]
  - POST PROCEDURAL HAEMORRHAGE [None]
